FAERS Safety Report 17364201 (Version 1)
Quarter: 2020Q1

REPORT INFORMATION
  Report Type: Report from Study
  Country: US (occurrence: US)
  Receive Date: 20200204
  Receipt Date: 20200204
  Transmission Date: 20200409
  Serious: Yes (Other)
  Sender: FDA-Public Use
  Company Number: US-BRISTOL-MYERS SQUIBB COMPANY-BMS-2020-008789

PATIENT
  Age: 40 Year
  Sex: Female

DRUGS (1)
  1. NIVOLUMAB [Suspect]
     Active Substance: NIVOLUMAB
     Indication: GASTROINTESTINAL STROMAL TUMOUR
     Dosage: 170 MILLIGRAM, Q2WK (MAX 240 MILLIGRAM)
     Route: 065

REACTIONS (6)
  - Fatigue [Unknown]
  - Pruritus [Unknown]
  - Appendicitis [Unknown]
  - Oedema peripheral [Recovering/Resolving]
  - Intentional product use issue [Unknown]
  - Arthralgia [Unknown]
